FAERS Safety Report 7979433-2 (Version None)
Quarter: 2011Q4

REPORT INFORMATION
  Report Type: 
  Country: None (occurrence: None)
  Receive Date: 20111209
  Receipt Date: 20111116
  Transmission Date: 20120403
  Serious: Yes (Other)
  Sender: FDA-Public Use
  Company Number: DSA_48225_2011

PATIENT
  Sex: Female

DRUGS (1)
  1. NIFEDOCA; X; EXTEMDED-RE;EASE TAB;ETS 60 MG [Suspect]
     Indication: HYPERTENSION
     Dosage: 60 MG

REACTIONS (4)
  - DRUG EFFECT DECREASED [None]
  - PRODUCT SUBSTITUTION ISSUE [None]
  - ECONOMIC PROBLEM [None]
  - BLOOD PRESSURE INCREASED [None]
